FAERS Safety Report 5626156-0 (Version None)
Quarter: 2008Q1

REPORT INFORMATION
  Report Type: 
  Country: None (occurrence: None)
  Receive Date: 20080213
  Receipt Date: 20080213
  Transmission Date: 20080703
  Serious: Yes (Hospitalization)
  Sender: FDA-Public Use
  Company Number: None

PATIENT
  Age: 75 Year
  Sex: Male
  Weight: 73.1 kg

DRUGS (2)
  1. FENTANYL-100 [Suspect]
     Indication: CANCER PAIN
     Dosage: EXCESS OF 100MCG Q72HR TRANSDERMAL (150MCG TOTAL FOUND ON PATIENT)
     Route: 062
     Dates: start: 20071223, end: 20071227
  2. FENTANYL-100 [Suspect]
     Indication: PROSTATE CANCER
     Dosage: EXCESS OF 100MCG Q72HR TRANSDERMAL (150MCG TOTAL FOUND ON PATIENT)
     Route: 062
     Dates: start: 20071223, end: 20071227

REACTIONS (5)
  - ABDOMINAL PAIN [None]
  - INCORRECT DOSE ADMINISTERED [None]
  - NAUSEA [None]
  - NIGHT SWEATS [None]
  - WRONG TECHNIQUE IN DRUG USAGE PROCESS [None]
